FAERS Safety Report 18894034 (Version 2)
Quarter: 2021Q1

REPORT INFORMATION
  Report Type: Report from Study
  Country: CA (occurrence: CA)
  Receive Date: 20210215
  Receipt Date: 20210217
  Transmission Date: 20210420
  Serious: Yes (Other)
  Sender: FDA-Public Use
  Company Number: CA-JNJFOC-20210215564

PATIENT
  Age: 14 Year
  Sex: Male
  Weight: 38 kg

DRUGS (2)
  1. REMICADE [Suspect]
     Active Substance: INFLIXIMAB
     Dosage: RELOAD: 400 MG PER STAT THEN 2 WEEKS THEREAFTER WITH MAINTENANCE DOSE OF EVERY 4 WEEKS
     Route: 042
     Dates: start: 202102
  2. REMICADE [Suspect]
     Active Substance: INFLIXIMAB
     Indication: COLITIS ULCERATIVE
     Route: 042
     Dates: start: 20191012

REACTIONS (3)
  - Rectal haemorrhage [Unknown]
  - Abdominal pain [Recovered/Resolved]
  - Diarrhoea [Unknown]

NARRATIVE: CASE EVENT DATE: 202102
